FAERS Safety Report 18740525 (Version 1)
Quarter: 2021Q1

REPORT INFORMATION
  Report Type: Spontaneous
  Country: US (occurrence: US)
  Receive Date: 20210114
  Receipt Date: 20210114
  Transmission Date: 20210419
  Serious: Yes (Other)
  Sender: FDA-Public Use
  Company Number: None

PATIENT
  Age: 71 Year
  Sex: Female

DRUGS (1)
  1. LOSARTAN. [Suspect]
     Active Substance: LOSARTAN
     Route: 048
     Dates: start: 20201111

REACTIONS (5)
  - Nausea [None]
  - Nasal congestion [None]
  - Vomiting [None]
  - Product odour abnormal [None]
  - Product taste abnormal [None]

NARRATIVE: CASE EVENT DATE: 20201111
